FAERS Safety Report 19349409 (Version 1)
Quarter: 2021Q2

REPORT INFORMATION
  Report Type: Spontaneous
  Country: FR (occurrence: FR)
  Receive Date: 20210531
  Receipt Date: 20210531
  Transmission Date: 20210717
  Serious: Yes (Other)
  Sender: FDA-Public Use
  Company Number: FR-AUROBINDO-AUR-APL-2021-022193

PATIENT
  Age: 38 Year
  Sex: Female

DRUGS (1)
  1. TRAMADOL. [Suspect]
     Active Substance: TRAMADOL
     Indication: PRODUCT USED FOR UNKNOWN INDICATION
     Dosage: AU MOINS 100 MG 3 X/JOUR
     Route: 048

REACTIONS (3)
  - Off label use [Unknown]
  - Drug dependence [Unknown]
  - Overdose [Unknown]
